FAERS Safety Report 13886231 (Version 1)
Quarter: 2017Q3

REPORT INFORMATION
  Report Type: Report from Study
  Country: IT (occurrence: IT)
  Receive Date: 20170821
  Receipt Date: 20170821
  Transmission Date: 20171127
  Serious: Yes (Other)
  Sender: FDA-Public Use
  Company Number: IT-TAKEDA-2017MPI007090

PATIENT

DRUGS (6)
  1. MELPHALAN. [Suspect]
     Active Substance: MELPHALAN
     Indication: PLASMA CELL MYELOMA
     Dosage: 9 MG/M2, UNK
     Route: 048
  2. VELCADE [Suspect]
     Active Substance: BORTEZOMIB
     Dosage: 1.3 MG/M2, UNK
     Route: 042
  3. THALIDOMIDE [Suspect]
     Active Substance: THALIDOMIDE
     Dosage: 50 MG, UNK
     Route: 065
  4. VELCADE [Suspect]
     Active Substance: BORTEZOMIB
     Indication: PLASMA CELL MYELOMA
     Dosage: 1.3 MG/M2, UNK
     Route: 042
  5. THALIDOMIDE [Suspect]
     Active Substance: THALIDOMIDE
     Indication: PLASMA CELL MYELOMA
     Dosage: 50 MG, UNK
     Route: 065
  6. PREDNISONE. [Suspect]
     Active Substance: PREDNISONE
     Indication: PLASMA CELL MYELOMA
     Dosage: 60 MG/M2, UNK
     Route: 048

REACTIONS (30)
  - Neuralgia [Unknown]
  - Neutropenia [Unknown]
  - Diarrhoea [Unknown]
  - Nausea [Unknown]
  - Myocardial infarction [Unknown]
  - Angina pectoris [Unknown]
  - Fatigue [Unknown]
  - Nervous system disorder [Unknown]
  - Cardiac disorder [Unknown]
  - Confusional state [Unknown]
  - Neuropathy peripheral [Unknown]
  - Depressed mood [Unknown]
  - Peripheral sensory neuropathy [Unknown]
  - Arrhythmia [Unknown]
  - Cardiac failure [Unknown]
  - Constipation [Unknown]
  - Oedema peripheral [Unknown]
  - Gastrointestinal disorder [Unknown]
  - Pulmonary embolism [Unknown]
  - Deep vein thrombosis [Unknown]
  - Infection [Unknown]
  - Sepsis [Unknown]
  - Vomiting [Unknown]
  - Thrombocytopenia [Unknown]
  - Pneumonia [Unknown]
  - Anaemia [Unknown]
  - Adverse event [Unknown]
  - Febrile neutropenia [Unknown]
  - Viral infection [Unknown]
  - Pyrexia [Unknown]
